FAERS Safety Report 7736480-3 (Version None)
Quarter: 2011Q3

REPORT INFORMATION
  Report Type: 
  Country: None (occurrence: None)
  Receive Date: 20110908
  Receipt Date: 20110830
  Transmission Date: 20111222
  Serious: Yes (Hospitalization)
  Sender: FDA-Public Use
  Company Number: US-SANOFI-AVENTIS-2011SA055924

PATIENT
  Age: 43 Year
  Sex: Male
  Weight: 88.5 kg

DRUGS (14)
  1. EFUDEX [Suspect]
     Route: 041
     Dates: start: 20110706
  2. EPIRUBICIN [Suspect]
     Indication: GASTRIC CANCER
     Route: 042
     Dates: start: 20110706, end: 20110706
  3. EFUDEX [Suspect]
     Route: 041
     Dates: start: 20110817, end: 20110823
  4. EPIRUBICIN [Suspect]
     Route: 042
     Dates: start: 20110817, end: 20110817
  5. OXALIPLATIN [Suspect]
     Indication: GASTRIC CANCER
     Route: 042
     Dates: start: 20110727, end: 20110727
  6. KYTRIL [Concomitant]
  7. OXALIPLATIN [Suspect]
     Route: 042
     Dates: start: 20110706, end: 20110706
  8. OXALIPLATIN [Suspect]
     Route: 042
     Dates: start: 20110817, end: 20110817
  9. EFUDEX [Suspect]
     Route: 041
     Dates: start: 20110720
  10. EFUDEX [Suspect]
     Route: 041
     Dates: start: 20110803
  11. MULTI-VITAMINS [Concomitant]
  12. EFUDEX [Suspect]
     Indication: GASTRIC CANCER
     Route: 041
     Dates: start: 20110713
  13. EFUDEX [Suspect]
     Route: 041
     Dates: start: 20110727
  14. EPIRUBICIN [Suspect]
     Route: 042
     Dates: start: 20110727, end: 20110727

REACTIONS (2)
  - ORTHOSTATIC HYPOTENSION [None]
  - DIARRHOEA [None]
